FAERS Safety Report 8947020 (Version 1)
Quarter: 2012Q4

REPORT INFORMATION
  Report Type: 
  Country: US (occurrence: US)
  Receive Date: 20121205
  Receipt Date: 20121205
  Transmission Date: 20130627
  Serious: No
  Sender: FDA-Public Use
  Company Number: US-PFIZER INC-2012303378

PATIENT
  Age: 43 Year
  Sex: Female

DRUGS (1)
  1. ADVIL CONGESTION RELIEF [Suspect]
     Indication: ALLERGY
     Dosage: UNK

REACTIONS (2)
  - Feeling abnormal [Unknown]
  - Feeling jittery [Unknown]
